FAERS Safety Report 6111671-6 (Version None)
Quarter: 2009Q1

REPORT INFORMATION
  Report Type: 
  Country: None (occurrence: None)
  Receive Date: 20090311
  Receipt Date: 20090306
  Transmission Date: 20090719
  Serious: Yes (Hospitalization)
  Sender: FDA-Public Use
  Company Number: US-BRISTOL-MYERS SQUIBB COMPANY-14160170

PATIENT
  Age: 64 Year
  Sex: Female

DRUGS (10)
  1. IXABEPILONE [Suspect]
     Indication: BREAST CANCER METASTATIC
     Dosage: INTERRUPTED ON 21-APR-2008
     Route: 042
     Dates: start: 20080401, end: 20080421
  2. CAPECITABINE [Suspect]
     Indication: BREAST CANCER METASTATIC
     Dosage: INTERRUPTED ON 21APR08
     Route: 048
     Dates: start: 20080411
  3. COUMADIN [Concomitant]
  4. LOVENOX [Concomitant]
  5. CELEBREX [Concomitant]
  6. FLEXERIL [Concomitant]
  7. ATIVAN [Concomitant]
     Dates: end: 20080418
  8. COMPAZINE [Concomitant]
     Dates: end: 20080418
  9. DURAGESIC-100 [Concomitant]
  10. XANAX [Concomitant]

REACTIONS (1)
  - BONE PAIN [None]
